FAERS Safety Report 8932048 (Version 6)
Quarter: 2013Q4

REPORT INFORMATION
  Report Type: Spontaneous
  Country: JP (occurrence: JP)
  Receive Date: 20121128
  Receipt Date: 20131029
  Transmission Date: 20140711
  Serious: Yes (Death, Hospitalization, Other)
  Sender: FDA-Public Use
  Company Number: JP-PFIZER INC-2012295544

PATIENT
  Age: 47 Year
  Sex: Male

DRUGS (8)
  1. SUTENT [Suspect]
     Indication: RENAL CELL CARCINOMA
     Dosage: 50 MG, 1X/DAY, 4 WKS ON AND 2 WKS OFF
     Route: 048
     Dates: start: 20120528
  2. SUTENT [Suspect]
     Dosage: 50 MG, 1X/DAY, BASICALLY 10 DAYS ON, 7 DAYS OFF
     Route: 048
     Dates: end: 20121111
  3. OXYCONTIN [Concomitant]
     Dosage: 2 TABLETS, TWICE DAILY
     Route: 048
  4. TAKEPRON [Concomitant]
  5. LOXONIN [Concomitant]
  6. MAGMITT [Concomitant]
  7. OPSO [Concomitant]
  8. RHYTHMY [Concomitant]

REACTIONS (5)
  - Disease progression [Fatal]
  - Renal cell carcinoma [Fatal]
  - Pneumothorax spontaneous [Recovering/Resolving]
  - Pneumothorax [Recovering/Resolving]
  - Pneumothorax [Not Recovered/Not Resolved]
